FAERS Safety Report 16940700 (Version 5)
Quarter: 2019Q4

REPORT INFORMATION
  Report Type: Report from Study
  Country: US (occurrence: US)
  Receive Date: 20191021
  Receipt Date: 20191106
  Transmission Date: 20200122
  Serious: Yes (Hospitalization, Other)
  Sender: FDA-Public Use
  Company Number: US-GILEAD-2019-0429946

PATIENT
  Age: 53 Year
  Sex: Female

DRUGS (3)
  1. ADCIRCA [Concomitant]
     Active Substance: TADALAFIL
     Dosage: UNK
  2. VELETRI [Suspect]
     Active Substance: EPOPROSTENOL
     Indication: PRODUCT USED FOR UNKNOWN INDICATION
     Dosage: 7 NG/KG/MIN
     Route: 065
  3. AMBRISENTAN [Suspect]
     Active Substance: AMBRISENTAN
     Indication: PRODUCT USED FOR UNKNOWN INDICATION
     Dosage: 10 MG, QD
     Route: 048
     Dates: start: 20171127

REACTIONS (21)
  - Urinary tract infection [Unknown]
  - Hepatic encephalopathy [Recovering/Resolving]
  - Abdominal pain [Not Recovered/Not Resolved]
  - Cough [Unknown]
  - Confusional state [Not Recovered/Not Resolved]
  - Dizziness [Not Recovered/Not Resolved]
  - Catheter site pain [Unknown]
  - Mental status changes [Not Recovered/Not Resolved]
  - Catheter site bruise [Unknown]
  - Catheter site erythema [Unknown]
  - Breath sounds abnormal [Recovering/Resolving]
  - Dyspnoea [Unknown]
  - Pain in jaw [Recovered/Resolved]
  - Lethargy [Not Recovered/Not Resolved]
  - Headache [Recovering/Resolving]
  - Tremor [Unknown]
  - Thrombocytopenia [Unknown]
  - Nausea [Recovered/Resolved]
  - Hot flush [Recovered/Resolved]
  - Flushing [Unknown]
  - Vomiting [Not Recovered/Not Resolved]
